FAERS Safety Report 15138957 (Version 1)
Quarter: 2018Q3

REPORT INFORMATION
  Report Type: Spontaneous
  Country: DE (occurrence: DE)
  Receive Date: 20180713
  Receipt Date: 20180713
  Transmission Date: 20181010
  Serious: Yes (Hospitalization)
  Sender: FDA-Public Use
  Company Number: DE-ASTRAZENECA-2018SE87853

PATIENT
  Age: 29 Year
  Sex: Female

DRUGS (1)
  1. FASENRA [Suspect]
     Active Substance: BENRALIZUMAB
     Dosage: 1
     Route: 058

REACTIONS (3)
  - Anaphylactic shock [Unknown]
  - Headache [Unknown]
  - Pyrexia [Unknown]
